FAERS Safety Report 23347002 (Version 1)
Quarter: 2023Q4

REPORT INFORMATION
  Report Type: Spontaneous
  Country: US (occurrence: US)
  Receive Date: 20231228
  Receipt Date: 20231228
  Transmission Date: 20240110
  Serious: No
  Sender: FDA-Public Use
  Company Number: US-ALKERMES INC.-ALK-2023-004674

PATIENT
  Sex: Female

DRUGS (3)
  1. ARISTADA [Suspect]
     Active Substance: ARIPIPRAZOLE LAUROXIL
     Indication: Product used for unknown indication
     Dosage: 1064 MILLIGRAM, Q2MO
     Route: 030
     Dates: start: 20231213
  2. ARISTADA [Suspect]
     Active Substance: ARIPIPRAZOLE LAUROXIL
     Dosage: 882 MILLIGRAM
     Route: 030
     Dates: start: 20231213
  3. ARIPIPRAZOLE [Concomitant]
     Active Substance: ARIPIPRAZOLE
     Indication: Product used for unknown indication
     Dosage: 30 MILLIGRAM, ONE TIME DOSE
     Route: 048
     Dates: start: 20231213, end: 20231213

REACTIONS (1)
  - Wrong product administered [Recovered/Resolved]

NARRATIVE: CASE EVENT DATE: 20231213
